FAERS Safety Report 6070014-7 (Version None)
Quarter: 2009Q1

REPORT INFORMATION
  Report Type: 
  Country: None (occurrence: None)
  Receive Date: 20090209
  Receipt Date: 20090128
  Transmission Date: 20090719
  Serious: Yes (Other)
  Sender: FDA-Public Use
  Company Number: PHEH2008US04439

PATIENT
  Sex: Female

DRUGS (1)
  1. ZOMETA [Suspect]
     Indication: NEOPLASM MALIGNANT

REACTIONS (24)
  - ANHEDONIA [None]
  - ANXIETY [None]
  - DENTURE WEARER [None]
  - DISCOMFORT [None]
  - EATING DISORDER [None]
  - EMOTIONAL DISTRESS [None]
  - ENDODONTIC PROCEDURE [None]
  - FISTULA [None]
  - GINGIVITIS [None]
  - INJURY [None]
  - LIFE EXPECTANCY SHORTENED [None]
  - OSTEONECROSIS [None]
  - PAIN [None]
  - PHYSICAL DISABILITY [None]
  - PRIMARY SEQUESTRUM [None]
  - SCAR [None]
  - SWELLING [None]
  - SWELLING FACE [None]
  - TEMPERATURE INTOLERANCE [None]
  - TOOTH DISORDER [None]
  - TOOTH EXTRACTION [None]
  - TOOTH LOSS [None]
  - TREATMENT NONCOMPLIANCE [None]
  - WOUND DRAINAGE [None]
